FAERS Safety Report 10661453 (Version 1)
Quarter: 2014Q4

REPORT INFORMATION
  Report Type: Spontaneous
  Country: FR (occurrence: None)
  Receive Date: 20141216
  Receipt Date: 20141216
  Transmission Date: 20150529
  Serious: Yes (Other)
  Sender: FDA-Public Use
  Company Number: NGX_02689_2014

PATIENT
  Sex: Male

DRUGS (2)
  1. QUTENZA [Suspect]
     Active Substance: CAPSAICIN
     Indication: NEUROPATHY PERIPHERAL
     Route: 062
     Dates: start: 20141030
  2. QUTENZA [Suspect]
     Active Substance: CAPSAICIN
     Indication: BACK PAIN
     Route: 062
     Dates: start: 20141030

REACTIONS (2)
  - Application site burn [None]
  - Burns second degree [None]

NARRATIVE: CASE EVENT DATE: 2014
